FAERS Safety Report 24613353 (Version 2)
Quarter: 2024Q4

REPORT INFORMATION
  Report Type: Spontaneous
  Country: FI (occurrence: None)
  Receive Date: 20241113
  Receipt Date: 20241122
  Transmission Date: 20250114
  Serious: Yes (Life-Threatening, Other)
  Sender: ORION
  Company Number: None

PATIENT
  Age: 52 Year
  Sex: Female

DRUGS (3)
  1. METHOTREXATE [Suspect]
     Active Substance: METHOTREXATE
     Indication: Polymyalgia rheumatica
     Dosage: STRENGTH: 25 MG, PRESCRIBED AMOUNT WAS 20MG AND THE LATEST WAS 15MG
     Dates: start: 20221113, end: 202212
  2. METHOTREXATE [Suspect]
     Active Substance: METHOTREXATE
     Dosage: STRENGTH: 25 MG, PRESCRIBED AMOUNT WAS 20MG AND THE LATEST WAS 15MG
     Dates: start: 20230122, end: 202302
  3. PREDNISOLONE [Concomitant]
     Active Substance: PREDNISOLONE
     Indication: Polymyalgia rheumatica
     Dosage: STRENGTH: 5 MG
     Dates: start: 202207

REACTIONS (48)
  - Malaise [Recovering/Resolving]
  - Asthenia [Recovering/Resolving]
  - Feeling of body temperature change [Recovering/Resolving]
  - Hyperhidrosis [Recovering/Resolving]
  - Muscle twitching [Recovering/Resolving]
  - Myokymia [Recovering/Resolving]
  - Muscular weakness [Recovering/Resolving]
  - Muscle fatigue [Recovering/Resolving]
  - Myalgia [Recovering/Resolving]
  - Dizziness [Recovering/Resolving]
  - Nausea [Recovering/Resolving]
  - Cognitive disorder [Recovering/Resolving]
  - Visual impairment [Recovering/Resolving]
  - Pericarditis [Recovering/Resolving]
  - Toxicity to various agents [Recovering/Resolving]
  - Abdominal distension [Recovering/Resolving]
  - Urine output decreased [Recovering/Resolving]
  - Abdominal pain upper [Recovering/Resolving]
  - Hepatic pain [Recovering/Resolving]
  - Flatulence [Recovering/Resolving]
  - Eructation [Recovering/Resolving]
  - Drug-genetic interaction [Recovering/Resolving]
  - Injury [Recovering/Resolving]
  - Immunodeficiency [Recovering/Resolving]
  - Hypothyroidism [Recovering/Resolving]
  - Renal failure [Recovering/Resolving]
  - Cardiac disorder [Recovering/Resolving]
  - Gastrointestinal disorder [Recovering/Resolving]
  - Intestinal barrier dysfunction [Recovering/Resolving]
  - Achlorhydria [Recovering/Resolving]
  - Pregnenolone deficiency [Recovering/Resolving]
  - Glutathione decreased [Recovering/Resolving]
  - Blood potassium increased [Recovering/Resolving]
  - Blood sodium increased [Recovering/Resolving]
  - Blood immunoglobulin G decreased [Recovering/Resolving]
  - Blepharitis [Recovering/Resolving]
  - Adverse event [Recovering/Resolving]
  - Blood calcium increased [Recovering/Resolving]
  - Differential white blood cell count abnormal [Recovering/Resolving]
  - Thirst [Recovering/Resolving]
  - Liver disorder [Recovering/Resolving]
  - Flank pain [Recovering/Resolving]
  - Back pain [Recovering/Resolving]
  - Product use in unapproved indication [Unknown]
  - Pruritus [Recovering/Resolving]
  - Dry eye [Recovering/Resolving]
  - Dry mouth [Recovering/Resolving]
  - Lymphopenia [Recovering/Resolving]

NARRATIVE: CASE EVENT DATE: 20220101
